FAERS Safety Report 17096958 (Version 1)
Quarter: 2019Q4

REPORT INFORMATION
  Report Type: Spontaneous
  Country: US (occurrence: US)
  Receive Date: 20191104
  Receipt Date: 20191104
  Transmission Date: 20200122
  Serious: Yes (Life-Threatening)
  Sender: FDA-Public Use
  Company Number: None

PATIENT
  Age: 33 Year
  Sex: Female
  Weight: 74.39 kg

DRUGS (1)
  1. PREGABALIN 150MG [Suspect]
     Active Substance: PREGABALIN
     Indication: FIBROMYALGIA
     Route: 048
     Dates: start: 20190824, end: 20190825

REACTIONS (2)
  - Product substitution issue [None]
  - Dysphagia [None]

NARRATIVE: CASE EVENT DATE: 20190825
